FAERS Safety Report 6464804-6 (Version None)
Quarter: 2009Q4

REPORT INFORMATION
  Report Type: 
  Country: None (occurrence: None)
  Receive Date: 20091201
  Receipt Date: 20091127
  Transmission Date: 20100525
  Serious: Yes (Death)
  Sender: FDA-Public Use
  Company Number: FR-WYE-G05007309

PATIENT
  Sex: Male

DRUGS (1)
  1. TORISEL [Suspect]
     Indication: MANTLE CELL LYMPHOMA
     Dosage: 175 MG EVERY 1 CYC
     Route: 042
     Dates: start: 20090101

REACTIONS (2)
  - DIARRHOEA [None]
  - LUNG DISORDER [None]
